FAERS Safety Report 4342399-0 (Version None)
Quarter: 2004Q2

REPORT INFORMATION
  Report Type: 
  Country: None (occurrence: None)
  Receive Date: 20040413
  Receipt Date: 20040330
  Transmission Date: 20050107
  Serious: No
  Sender: FDA-Public Use
  Company Number: REL-RIR-105

PATIENT
  Sex: Male

DRUGS (1)
  1. RYTHMOL [Suspect]
     Dosage: 150 MG QD PO
     Route: 048

REACTIONS (2)
  - ATRIAL FIBRILLATION [None]
  - DRUG INEFFECTIVE [None]
